FAERS Safety Report 8578247 (Version 4)
Quarter: 2014Q1

REPORT INFORMATION
  Report Type: Spontaneous
  Country: US (occurrence: US)
  Receive Date: 20120524
  Receipt Date: 20140122
  Transmission Date: 20141002
  Serious: Yes (Death, Other)
  Sender: FDA-Public Use
  Company Number: US-ROCHE-1060380

PATIENT
  Sex: Female
  Weight: 69.01 kg

DRUGS (4)
  1. XELODA [Suspect]
     Indication: COLORECTAL CANCER
     Dosage: 2 WEEKS ON, 1 WEEK OFF
     Route: 048
  2. XELODA [Suspect]
     Indication: COLON CANCER STAGE IV
     Dosage: CONTINUOUSLY WITHOUT BREAK
     Route: 048
  3. XELODA [Suspect]
     Dosage: 3 WEEKS ON, 1 WEEK OFF
     Route: 048
     Dates: start: 201011
  4. AVASTIN [Suspect]
     Indication: COLORECTAL CANCER
     Dosage: EVERY THIRD WEEK
     Route: 042
     Dates: start: 201012

REACTIONS (8)
  - Haemorrhage [Fatal]
  - Carcinoembryonic antigen increased [Unknown]
  - Metastases to liver [Unknown]
  - Oesophageal haemorrhage [Unknown]
  - Coma [Unknown]
  - Impaired healing [Unknown]
  - Drug resistance [Unknown]
  - Portal hypertension [Unknown]
